FAERS Safety Report 5457923-4 (Version None)
Quarter: 2007Q3

REPORT INFORMATION
  Report Type: 
  Country: None (occurrence: None)
  Receive Date: 20070918
  Receipt Date: 20070914
  Transmission Date: 20080115
  Serious: Yes (Death, Hospitalization)
  Sender: FDA-Public Use
  Company Number: CA-MERCK-0707CAN00035

PATIENT
  Age: 70 Year
  Sex: Male

DRUGS (8)
  1. ZETIA [Suspect]
     Indication: HYPERLIPIDAEMIA
     Route: 048
     Dates: start: 20040101
  2. WARFARIN SODIUM [Concomitant]
     Route: 065
  3. RANITIDINE HYDROCHLORIDE [Concomitant]
     Route: 065
  4. PHENYTOIN [Concomitant]
     Route: 065
  5. VENLAFAXINE HYDROCHLORIDE [Concomitant]
     Route: 065
  6. ATORVASTATIN CALCIUM [Concomitant]
     Route: 065
  7. TAMSULOSIN HYDROCHLORIDE [Concomitant]
     Route: 065
  8. VALSARTAN [Concomitant]
     Route: 065

REACTIONS (5)
  - CHEST PAIN [None]
  - DEEP VEIN THROMBOSIS [None]
  - PNEUMONIA [None]
  - PULMONARY INFARCTION [None]
  - SEPSIS [None]
